FAERS Safety Report 5430921-2 (Version None)
Quarter: 2007Q3

REPORT INFORMATION
  Report Type: 
  Country: None (occurrence: None)
  Receive Date: 20070828
  Receipt Date: 20070813
  Transmission Date: 20080115
  Serious: Yes (Other)
  Sender: FDA-Public Use
  Company Number: 2007RR-09282

PATIENT
  Age: 77 Year
  Sex: Male

DRUGS (2)
  1. CLARITHROMYCIN [Suspect]
     Indication: BRONCHITIS
     Dosage: 200 MG, BID,; 200 MG, QD,
  2. METHYLDIGOXIN (METHYLDIGOXIN) [Suspect]
     Indication: CARDIAC FAILURE CONGESTIVE
     Dosage: 0.05 MG, QD, ORAL
     Route: 048

REACTIONS (5)
  - ANOREXIA [None]
  - BRADYCARDIA [None]
  - DIARRHOEA [None]
  - DRUG INTERACTION [None]
  - THERAPEUTIC AGENT TOXICITY [None]
